FAERS Safety Report 7357154-7 (Version None)
Quarter: 2011Q1

REPORT INFORMATION
  Report Type: 
  Country: None (occurrence: None)
  Receive Date: 20110311
  Receipt Date: 20110311
  Transmission Date: 20110831
  Serious: No
  Sender: FDA-Public Use
  Company Number: None

PATIENT
  Age: 36 Year
  Sex: Female
  Weight: 56.8 kg

DRUGS (3)
  1. EQUATE HYDROCORTISONE CREAM [Concomitant]
  2. DERMAREST ECZEMA CREAM [Concomitant]
  3. UREACIN-20 CREME (4OZ) [Suspect]
     Indication: DERMATITIS
     Dosage: EXTERNAL APPLICATION TWICE DAILY TOPICAL-060
     Route: 061
     Dates: start: 20110309

REACTIONS (3)
  - APPLICATION SITE IRRITATION [None]
  - APPLICATION SITE PAIN [None]
  - APPLICATION SITE ERYTHEMA [None]
